FAERS Safety Report 5318364-3 (Version None)
Quarter: 2007Q1

REPORT INFORMATION
  Report Type: 
  Country: None (occurrence: None)
  Receive Date: 20070130
  Receipt Date: 20061005
  Transmission Date: 20070707
  Serious: No
  Sender: FDA-Public Use
  Company Number: 200618343US

PATIENT
  Age: 36 Year
  Sex: Female
  Weight: 101.8 kg

DRUGS (7)
  1. KETEK [Suspect]
  2. PROCHLORPERAZINE [Concomitant]
  3. OMEPRAZOLE (PRILOSEC /000661201/) [Concomitant]
  4. NAPROXEN (NAPROSYN /00256201/) [Concomitant]
  5. OXYBENZONE, PADIMATE (COPPERTONE /00689201/) [Concomitant]
  6. SALBUTAMOL [Concomitant]
  7. CETIRIZINE HYDROCHLORIDE (ZYRTEC /00884302/) [Concomitant]

REACTIONS (7)
  - DRY SKIN [None]
  - DYSURIA [None]
  - ERYTHEMA [None]
  - NAUSEA [None]
  - RASH [None]
  - RASH MACULAR [None]
  - VISION BLURRED [None]
